FAERS Safety Report 6210654-5 (Version None)
Quarter: 2009Q2

REPORT INFORMATION
  Report Type: 
  Country: None (occurrence: None)
  Receive Date: 20090601
  Receipt Date: 20090527
  Transmission Date: 20091009
  Serious: Yes (Other)
  Sender: FDA-Public Use
  Company Number: CN-JNJFOC-20090505750

PATIENT
  Age: 40 Year
  Sex: Female

DRUGS (1)
  1. TYLENOL [Suspect]
     Indication: NASOPHARYNGITIS
     Dosage: 16250 MG ACETAMINOPHEN/1500 MG CHLORPHENIRAMINE/750 MG DEXTROMETHORPHAN HBR/100 MG  PSEUDOEPHEDRINE

REACTIONS (1)
  - OVERDOSE [None]
